FAERS Safety Report 4323144-1 (Version None)
Quarter: 2004Q1

REPORT INFORMATION
  Report Type: 
  Country: None (occurrence: None)
  Receive Date: 20040322
  Receipt Date: 20040311
  Transmission Date: 20041129
  Serious: Yes (Hospitalization)
  Sender: FDA-Public Use
  Company Number: 2004200692US

PATIENT
  Age: 67 Year
  Sex: Male
  Weight: 61.2 kg

DRUGS (9)
  1. CELECOXIB VS PLACEBO (CELECOXIB VS PLACEBO) CAPSULE [Suspect]
     Indication: COLORECTAL CANCER METASTATIC
     Dosage: 200 MG, BID, ORAL
     Route: 048
     Dates: start: 20031024, end: 20040221
  2. CELECOXIB VS PLACEBO (CELECOXIB VS PLACEBO) CAPSULE [Suspect]
     Indication: COLORECTAL CANCER METASTATIC
     Dosage: 200 MG, BID, ORAL
     Route: 048
     Dates: start: 20040308
  3. CAMPTOSAR [Suspect]
     Indication: COLORECTAL CANCER METASTATIC
     Dosage: 440 MG, EVERY 3 WKS, CYCLIC, IV
     Route: 042
     Dates: start: 20031024
  4. COMPARATOR -CAPECITABINE (CAPECITABINE, CAPECITABINE) TABLET [Suspect]
     Indication: COLORECTAL CANCER METASTATIC
     Dosage: 3600 MG, QD, ORAL
     Route: 048
     Dates: start: 20031024
  5. IMODIUM [Concomitant]
  6. ZOFRAN (ONANSETRON HYDROCHLORIDE) [Concomitant]
  7. NEXIUM [Concomitant]
  8. REMERON [Concomitant]
  9. LEXAPRO [Concomitant]

REACTIONS (4)
  - DEHYDRATION [None]
  - DIARRHOEA [None]
  - NAUSEA [None]
  - SMALL BOWEL ANGIOEDEMA [None]
